FAERS Safety Report 23970364 (Version 1)
Quarter: 2024Q2

REPORT INFORMATION
  Report Type: Spontaneous
  Country: US (occurrence: US)
  Receive Date: 20240613
  Receipt Date: 20240613
  Transmission Date: 20240716
  Serious: Yes (Other)
  Sender: FDA-Public Use
  Company Number: US-002147023-NVSC2024US120858

PATIENT

DRUGS (3)
  1. KISQALI [Suspect]
     Active Substance: RIBOCICLIB
     Indication: Product used for unknown indication
     Dosage: UNK
     Route: 065
  2. KISQALI [Suspect]
     Active Substance: RIBOCICLIB
     Dosage: 400 MG
     Route: 065
  3. FEMARA [Suspect]
     Active Substance: LETROZOLE
     Indication: Product used for unknown indication
     Dosage: UNK
     Route: 065

REACTIONS (39)
  - Positron emission tomogram abnormal [Unknown]
  - Breast neoplasm [Unknown]
  - Lymphadenopathy [Unknown]
  - Lower respiratory tract infection [Unknown]
  - Liver injury [Unknown]
  - Breast pain [Unknown]
  - Neutrophil count abnormal [Unknown]
  - Headache [Unknown]
  - Tumour marker increased [Unknown]
  - Solar lentigo [Unknown]
  - Liver disorder [Unknown]
  - Asthenia [Unknown]
  - Fatigue [Unknown]
  - Disease progression [Unknown]
  - Dry skin [Unknown]
  - Anxiety [Unknown]
  - Nausea [Unknown]
  - Tumour marker decreased [Unknown]
  - Neutrophil count decreased [Recovering/Resolving]
  - Decreased appetite [Unknown]
  - Rash [Unknown]
  - Alopecia [Unknown]
  - White blood cell count decreased [Recovering/Resolving]
  - Pyrexia [Unknown]
  - Glossodynia [Unknown]
  - Weight decreased [Unknown]
  - Brain fog [Unknown]
  - Dizziness [Unknown]
  - Dyspnoea [Unknown]
  - Onychalgia [Unknown]
  - Toothache [Unknown]
  - Gingival pain [Unknown]
  - Tinnitus [Unknown]
  - Tremor [Unknown]
  - Pruritus [Unknown]
  - Swelling [Unknown]
  - Hangover [Unknown]
  - Temperature intolerance [Unknown]
  - Pain of skin [Unknown]
